FAERS Safety Report 11277628 (Version 2)
Quarter: 2015Q3

REPORT INFORMATION
  Report Type: Spontaneous
  Country: VE (occurrence: VE)
  Receive Date: 20150716
  Receipt Date: 20150813
  Transmission Date: 20151125
  Serious: No
  Sender: FDA-Public Use
  Company Number: PHHY2015VE085610

PATIENT
  Age: 76 Year
  Sex: Female

DRUGS (9)
  1. CALCIUM [Concomitant]
     Active Substance: CALCIUM
     Indication: PRODUCT USED FOR UNKNOWN INDICATION
     Route: 065
  2. VALSARTAN. [Concomitant]
     Active Substance: VALSARTAN
     Indication: HYPERTENSION
     Dosage: 80 MG, QD
     Route: 048
     Dates: start: 201403
  3. AZARGA [Concomitant]
     Active Substance: BRINZOLAMIDE\TIMOLOL MALEATE
     Indication: INTRAOCULAR PRESSURE INCREASED
     Dosage: UNK UNK, QD
     Route: 065
  4. COMENTER [Concomitant]
     Indication: DEPRESSION
     Dosage: 15 MG, QD
     Route: 048
     Dates: start: 20131010
  5. FLURALEMA [Concomitant]
     Indication: INSOMNIA
     Dosage: 15 MG, QD
     Route: 048
     Dates: start: 20131010
  6. EXELON PATCH [Suspect]
     Active Substance: RIVASTIGMINE
     Indication: COGNITIVE DISORDER
     Dosage: 4.6 MG (PATCH 9 MG/5CM2), QD
     Route: 062
     Dates: start: 20131010
  7. XALATAN [Concomitant]
     Active Substance: LATANOPROST
     Indication: INTRAOCULAR PRESSURE INCREASED
     Dosage: UNK UNK, QD
     Route: 065
     Dates: start: 201308
  8. NIMODIPINE. [Concomitant]
     Active Substance: NIMODIPINE
     Indication: NERVOUS SYSTEM DISORDER
     Dosage: 30 MG, QD
     Route: 048
     Dates: start: 20130317
  9. EXELON PATCH [Suspect]
     Active Substance: RIVASTIGMINE
     Indication: PROPHYLAXIS

REACTIONS (1)
  - Off label use [Unknown]
